FAERS Safety Report 10215184 (Version 1)
Quarter: 2014Q2

REPORT INFORMATION
  Report Type: Spontaneous
  Country: GB (occurrence: GB)
  Receive Date: 20140603
  Receipt Date: 20140603
  Transmission Date: 20141212
  Serious: Yes (Other)
  Sender: FDA-Public Use
  Company Number: PHHY2014GB065380

PATIENT
  Age: 46 Year
  Sex: Female

DRUGS (3)
  1. VENLAFAXINE [Suspect]
     Indication: DEPRESSION
     Dosage: 150 MG, UNK
     Route: 048
     Dates: start: 20130321, end: 20140428
  2. CO-CODAMOL [Concomitant]
  3. NAPROXEN [Concomitant]

REACTIONS (2)
  - Migraine with aura [Recovered/Resolved]
  - Withdrawal syndrome [Unknown]
